FAERS Safety Report 21725696 (Version 3)
Quarter: 2023Q1

REPORT INFORMATION
  Report Type: Spontaneous
  Country: US (occurrence: US)
  Receive Date: 20221214
  Receipt Date: 20230123
  Transmission Date: 20230418
  Serious: No
  Sender: FDA-Public Use
  Company Number: US-JNJFOC-20221214801

PATIENT
  Age: 62 Year
  Sex: Female

DRUGS (1)
  1. SIMPONI [Suspect]
     Active Substance: GOLIMUMAB
     Indication: Rheumatoid arthritis
     Dosage: 50 MG/0.5ML
     Route: 058
     Dates: start: 20220812

REACTIONS (3)
  - Injection site haemorrhage [Unknown]
  - Device issue [Unknown]
  - Product dose omission issue [Unknown]
